FAERS Safety Report 23103524 (Version 1)
Quarter: 2023Q4

REPORT INFORMATION
  Report Type: Spontaneous
  Country: US (occurrence: None)
  Receive Date: 20231022
  Receipt Date: 20231022
  Transmission Date: 20240109
  Serious: Yes (Hospitalization)
  Sender: FDA-Public Use
  Company Number: None

PATIENT
  Age: 41 Year
  Sex: Male
  Weight: 77.1 kg

DRUGS (2)
  1. HYDROCHLOROTHIAZIDE [Suspect]
     Active Substance: HYDROCHLOROTHIAZIDE
     Dosage: OTHER QUANTITY : 1/2 TAB;?FREQUENCY : DAILY;?
     Route: 048
     Dates: start: 20220712, end: 20220722
  2. OLMESARTAN [Suspect]
     Active Substance: OLMESARTAN
     Dates: end: 20220722

REACTIONS (5)
  - Blood creatinine increased [None]
  - Dehydration [None]
  - Vomiting [None]
  - Asthenia [None]
  - Blood pressure decreased [None]

NARRATIVE: CASE EVENT DATE: 20220722
